FAERS Safety Report 12399406 (Version 2)
Quarter: 2016Q2

REPORT INFORMATION
  Report Type: Spontaneous
  Country: JP (occurrence: JP)
  Receive Date: 20160524
  Receipt Date: 20160623
  Transmission Date: 20160815
  Serious: Yes (Other)
  Sender: FDA-Public Use
  Company Number: JP-IGI LABORATORIES, INC.-1052746

PATIENT
  Age: 39 Year
  Sex: Male
  Weight: 62.2 kg

DRUGS (4)
  1. ZANTAC [Suspect]
     Active Substance: RANITIDINE HYDROCHLORIDE
     Indication: GASTRIC ULCER
     Route: 048
     Dates: start: 201303
  2. CHAMPIX [Suspect]
     Active Substance: VARENICLINE TARTRATE
     Route: 048
     Dates: start: 20160118, end: 20160215
  3. CHAMPIX [Suspect]
     Active Substance: VARENICLINE TARTRATE
     Route: 048
     Dates: start: 20160216, end: 20160217
  4. MAZULENIN [Concomitant]
     Route: 065
     Dates: start: 201303

REACTIONS (6)
  - Suicidal ideation [Recovered/Resolved]
  - Dizziness [Recovered/Resolved]
  - Drug interaction [Unknown]
  - Somnolence [Recovered/Resolved]
  - Suicidal behaviour [Recovered/Resolved]
  - Depression [Recovered/Resolved]

NARRATIVE: CASE EVENT DATE: 20160202
